FAERS Safety Report 7063342-X (Version None)
Quarter: 2010Q4

REPORT INFORMATION
  Report Type: 
  Country: None (occurrence: None)
  Receive Date: 20101026
  Receipt Date: 20091102
  Transmission Date: 20110411
  Serious: No
  Sender: FDA-Public Use
  Company Number: US-ABBOTT-09P-163-0606797-00

PATIENT
  Sex: Female

DRUGS (3)
  1. LUPRON [Suspect]
     Indication: INFERTILITY FEMALE
     Route: 058
     Dates: start: 20090801, end: 20091021
  2. LOVENOX [Concomitant]
     Indication: PROPHYLAXIS
  3. LOVENOX [Concomitant]
     Indication: GENE MUTATION

REACTIONS (1)
  - INJURY ASSOCIATED WITH DEVICE [None]
